FAERS Safety Report 6024735-2 (Version None)
Quarter: 2008Q4

REPORT INFORMATION
  Report Type: 
  Country: None (occurrence: None)
  Receive Date: 20081231
  Receipt Date: 20081218
  Transmission Date: 20090506
  Serious: Yes (Other)
  Sender: FDA-Public Use
  Company Number: AU-SOLVAY-00308006100

PATIENT
  Sex: Male

DRUGS (4)
  1. ASPIRIN [Concomitant]
     Indication: GASTROOESOPHAGEAL REFLUX DISEASE
     Dosage: DAILY DOSE:  UNKNOWN
     Route: 065
  2. CREON [Suspect]
     Indication: PANCREATITIS CHRONIC
     Dosage: DAILY DOSE:  UNKNOWN, AS USED 10000
     Route: 065
  3. CREON [Suspect]
     Dosage: DAILY DOSE:  UNKNOWN; AS USED 25000-50000 AND ABOVE
     Route: 065
  4. CREON [Suspect]
     Dosage: DAILY DOSE:  UNKNOWN; AS USED 5000
     Route: 065

REACTIONS (1)
  - DUODENAL ULCER [None]
